FAERS Safety Report 9959980 (Version 1)
Quarter: 2014Q1

REPORT INFORMATION
  Report Type: Report from Study
  Country: US (occurrence: US)
  Receive Date: 20140305
  Receipt Date: 20140305
  Transmission Date: 20141002
  Serious: No
  Sender: FDA-Public Use
  Company Number: US-ABBVIE-13P-163-1106523-00

PATIENT
  Age: 38 Year
  Sex: Female

DRUGS (3)
  1. HUMIRA [Suspect]
     Indication: COLITIS ULCERATIVE
     Dates: start: 20130502
  2. ASACOL [Concomitant]
     Indication: COLITIS ULCERATIVE
  3. XANAX [Concomitant]
     Indication: ANXIETY

REACTIONS (2)
  - Injection site mass [Recovering/Resolving]
  - Injection site erythema [Recovering/Resolving]
